FAERS Safety Report 10549450 (Version 1)
Quarter: 2014Q4

REPORT INFORMATION
  Report Type: Report from Study
  Country: None (occurrence: None)
  Receive Date: 20141016
  Receipt Date: 20141016
  Transmission Date: 20150529
  Serious: No
  Sender: FDA-Public Use
  Company Number: CABO-14004618

PATIENT
  Age: 76 Year
  Sex: Male

DRUGS (1)
  1. COMETRIQ [Suspect]
     Active Substance: CABOZANTINIB S-MALATE
     Indication: PROSTATE CANCER
     Route: 048
     Dates: start: 20140807

REACTIONS (9)
  - Decreased appetite [None]
  - Nausea [None]
  - Vomiting [None]
  - Off label use [None]
  - Musculoskeletal pain [None]
  - Dysphonia [None]
  - Groin pain [None]
  - Hypertension [None]
  - Constipation [None]

NARRATIVE: CASE EVENT DATE: 2014
